FAERS Safety Report 18727364 (Version 1)
Quarter: 2021Q1

REPORT INFORMATION
  Report Type: Spontaneous
  Country: US (occurrence: US)
  Receive Date: 20210112
  Receipt Date: 20210112
  Transmission Date: 20210419
  Serious: Yes (Hospitalization)
  Sender: FDA-Public Use
  Company Number: US-DRREDDYS-USA/USA/21/0130885

PATIENT
  Age: 48 Year
  Sex: Female

DRUGS (1)
  1. SEVELAMER CARBONATE TABLETS, 800 MG [Suspect]
     Active Substance: SEVELAMER CARBONATE
     Indication: PRODUCT USED FOR UNKNOWN INDICATION

REACTIONS (5)
  - Gastric ulcer [Unknown]
  - Crystal deposit intestine [Unknown]
  - Nausea [Unknown]
  - Gastric cancer [Unknown]
  - Flank pain [Recovered/Resolved]
